FAERS Safety Report 11976603 (Version 1)
Quarter: 2016Q1

REPORT INFORMATION
  Report Type: Spontaneous
  Country: US (occurrence: US)
  Receive Date: 20160129
  Receipt Date: 20160129
  Transmission Date: 20160526
  Serious: Yes (Hospitalization)
  Sender: FDA-Public Use
  Company Number: US-LNK INTERNATIONAL, INC.-1047076

PATIENT
  Age: 52 Year
  Sex: Male

DRUGS (1)
  1. IBUPROFEN. [Suspect]
     Active Substance: IBUPROFEN
     Indication: PAIN IN EXTREMITY

REACTIONS (11)
  - Cerebral disorder [None]
  - Biopsy brain [None]
  - Seizure [None]
  - Terminal insomnia [None]
  - Myocardial infarction [None]
  - Blood urine present [None]
  - Headache [None]
  - Arthralgia [None]
  - Blood pressure increased [None]
  - Loss of consciousness [None]
  - Brain oedema [None]

NARRATIVE: CASE EVENT DATE: 20150317
